APPROVED DRUG PRODUCT: GLYBURIDE (MICRONIZED)
Active Ingredient: GLYBURIDE
Strength: 1.5MG
Dosage Form/Route: TABLET;ORAL
Application: A074686 | Product #001
Applicant: TEVA PHARMACEUTICALS USA INC
Approved: Apr 20, 1999 | RLD: No | RS: No | Type: RX